FAERS Safety Report 9807164 (Version 1)
Quarter: 2014Q1

REPORT INFORMATION
  Report Type: Spontaneous
  Country: US (occurrence: US)
  Receive Date: 20140110
  Receipt Date: 20140110
  Transmission Date: 20141002
  Serious: Yes (Hospitalization)
  Sender: FDA-Public Use
  Company Number: US-BIOGENIDEC-2014BI000502

PATIENT
  Age: 42 Year
  Sex: Female

DRUGS (1)
  1. AVONEX [Suspect]
     Indication: MULTIPLE SCLEROSIS
     Route: 030

REACTIONS (7)
  - Ulcer haemorrhage [Unknown]
  - Convulsion [Unknown]
  - Paralysis [Recovered/Resolved]
  - Fear [Recovered/Resolved]
  - Amnesia [Recovered/Resolved]
  - Injection site reaction [Recovered/Resolved]
  - Drug ineffective [Recovered/Resolved]
